FAERS Safety Report 4609105-3 (Version None)
Quarter: 2005Q2

REPORT INFORMATION
  Report Type: 
  Country: None (occurrence: None)
  Receive Date: 20050301
  Receipt Date: 20040226
  Transmission Date: 20051028
  Serious: Yes (Other)
  Sender: FDA-Public Use
  Company Number: 20040200191

PATIENT

DRUGS (2)
  1. REGLAN [Suspect]
     Indication: ILL-DEFINED DISORDER
     Dosage: 10 MG DAILY
  2. WELLBUTRIN XL (BUPROPION HCL) TABLETS GLAXO SMITH KLINE [Suspect]
     Indication: ILL-DEFINED DISORDER
     Dosage: 300 MG DAILY PO
     Route: 048

REACTIONS (1)
  - CONVULSION [None]
